FAERS Safety Report 9422914 (Version 2)
Quarter: 2013Q3

REPORT INFORMATION
  Report Type: Report from Study
  Country: US (occurrence: US)
  Receive Date: 20130726
  Receipt Date: 20130909
  Transmission Date: 20140515
  Serious: Yes (Death, Hospitalization)
  Sender: FDA-Public Use
  Company Number: US-ACTELION-A-NJ2013-86154

PATIENT
  Age: 76 Year
  Sex: Female

DRUGS (3)
  1. VENTAVIS [Suspect]
     Indication: PULMONARY ARTERIAL HYPERTENSION
     Dosage: UNK
     Route: 055
     Dates: end: 20130720
  2. LETAIRIS [Concomitant]
  3. COUMADIN [Concomitant]

REACTIONS (2)
  - Pulmonary hypertension [Fatal]
  - Pneumonia [Unknown]
